FAERS Safety Report 22189619 (Version 1)
Quarter: 2023Q2

REPORT INFORMATION
  Report Type: Spontaneous
  Country: GB (occurrence: GB)
  Receive Date: 20230410
  Receipt Date: 20230410
  Transmission Date: 20230722
  Serious: Yes (Other)
  Sender: FDA-Public Use
  Company Number: GB-CELLTRION INC.-2022GB017039

PATIENT

DRUGS (9)
  1. INFLIXIMAB [Suspect]
     Active Substance: INFLIXIMAB
     Indication: Pyoderma gangrenosum
     Dosage: 5 MG/KG, EVERY 6 WEEKS AS MONOTHERAPY
  2. INFLIXIMAB [Suspect]
     Active Substance: INFLIXIMAB
     Dosage: 5 MG/KG, EVERY 6 WEEKS
  3. METHOTREXATE SODIUM [Suspect]
     Active Substance: METHOTREXATE SODIUM
     Indication: Pyoderma gangrenosum
     Dosage: 10 MG, WEEKLY
  4. CYCLOSPORINE [Suspect]
     Active Substance: CYCLOSPORINE
     Indication: Pyoderma gangrenosum
     Dosage: 3 MG/KG
  5. METHOTREXATE [Suspect]
     Active Substance: METHOTREXATE
     Indication: Pyoderma gangrenosum
     Dosage: 10 MG, WEEKLY
  6. PREDNISOLONE [Suspect]
     Active Substance: PREDNISOLONE
     Indication: Pyoderma gangrenosum
     Dosage: 0.5 MG/KG
  7. PREDNISOLONE [Suspect]
     Active Substance: PREDNISOLONE
     Dosage: 1 MG/KG
  8. SECUKINUMAB [Concomitant]
     Active Substance: SECUKINUMAB
     Indication: Pyoderma gangrenosum
     Dosage: 300 MG, WEEKLY
  9. SECUKINUMAB [Concomitant]
     Active Substance: SECUKINUMAB
     Dosage: INCREASED TO TWO- WEEKLY

REACTIONS (4)
  - Drug ineffective for unapproved indication [Unknown]
  - Hypertension [Unknown]
  - Off label use [Unknown]
  - Drug ineffective [Unknown]
